FAERS Safety Report 4587375-8 (Version None)
Quarter: 2005Q1

REPORT INFORMATION
  Report Type: 
  Country: None (occurrence: None)
  Receive Date: 20050216
  Receipt Date: 20050203
  Transmission Date: 20050727
  Serious: Yes (Hospitalization)
  Sender: FDA-Public Use
  Company Number: JP-JNJFOC-20040905778

PATIENT
  Sex: Male
  Weight: 57 kg

DRUGS (10)
  1. REMICADE [Suspect]
     Route: 042
  2. REMICADE [Suspect]
     Route: 042
  3. REMICADE [Suspect]
     Indication: RHEUMATOID ARTHRITIS
     Route: 042
  4. PREDNISOLONE [Suspect]
     Indication: RHEUMATOID ARTHRITIS
     Route: 049
  5. METHOTREXATE [Suspect]
     Route: 049
  6. METHOTREXATE [Suspect]
     Route: 049
  7. METHOTREXATE [Suspect]
     Indication: RHEUMATOID ARTHRITIS
     Route: 049
  8. INH [Concomitant]
     Indication: TUBERCULOSIS PROPHYLAXIS
  9. LOXOT [Concomitant]
     Indication: RHEUMATOID ARTHRITIS
     Route: 049
  10. MAZUREN S [Concomitant]
     Route: 049

REACTIONS (2)
  - DRUG INEFFECTIVE [None]
  - PNEUMOCYSTIS JIROVECI PNEUMONIA [None]
